FAERS Safety Report 26073440 (Version 1)
Quarter: 2025Q4

REPORT INFORMATION
  Report Type: Spontaneous
  Country: EU (occurrence: EU)
  Receive Date: 20251121
  Receipt Date: 20251121
  Transmission Date: 20260117
  Serious: No
  Sender: ALKEM
  Company Number: EU-ALKEM LABORATORIES LIMITED-BE-ALKEM-2025-05589

PATIENT
  Age: 6 Decade
  Sex: Male

DRUGS (5)
  1. MINOCYCLINE [Suspect]
     Active Substance: MINOCYCLINE HYDROCHLORIDE
     Indication: Urethritis mycoplasmal
     Dosage: UNK
     Route: 065
  2. METHENAMINE [Suspect]
     Active Substance: METHENAMINE
     Indication: Urethritis mycoplasmal
     Dosage: UNK
     Route: 065
  3. METRONIDAZOLE [Suspect]
     Active Substance: METRONIDAZOLE
     Indication: Urethritis mycoplasmal
     Dosage: UNK
     Route: 065
  4. PRISTINAMYCIN [Suspect]
     Active Substance: PRISTINAMYCIN
     Indication: Urethritis mycoplasmal
     Dosage: UNK
     Route: 065
  5. PRISTINAMYCIN [Suspect]
     Active Substance: PRISTINAMYCIN
     Dosage: UNK
     Route: 065

REACTIONS (2)
  - Paraesthesia [Unknown]
  - Diarrhoea [Unknown]
